FAERS Safety Report 25580818 (Version 1)
Quarter: 2025Q3

REPORT INFORMATION
  Report Type: Spontaneous
  Country: US (occurrence: US)
  Receive Date: 20250718
  Receipt Date: 20250718
  Transmission Date: 20251020
  Serious: No
  Sender: NOVO NORDISK
  Company Number: US-NOVOPROD-1435852

PATIENT
  Sex: Male

DRUGS (2)
  1. WEGOVY [Suspect]
     Active Substance: SEMAGLUTIDE
     Indication: Blood cholesterol
  2. WEGOVY [Suspect]
     Active Substance: SEMAGLUTIDE
     Indication: Cardiac disorder
     Dosage: 1 MG, QW
     Route: 058
     Dates: start: 202405

REACTIONS (3)
  - Palpitations [Recovered/Resolved]
  - Tachycardia [Recovered/Resolved]
  - Dizziness [Recovered/Resolved]
